FAERS Safety Report 11286764 (Version 4)
Quarter: 2016Q1

REPORT INFORMATION
  Report Type: Report from Study
  Country: US (occurrence: US)
  Receive Date: 20150721
  Receipt Date: 20160113
  Transmission Date: 20160525
  Serious: Yes (Hospitalization)
  Sender: FDA-Public Use
  Company Number: PHEH2015US013495

PATIENT
  Sex: Female
  Weight: 65.76 kg

DRUGS (1)
  1. GILENYA [Suspect]
     Active Substance: FINGOLIMOD HYDROCHLORIDE
     Indication: MULTIPLE SCLEROSIS
     Dosage: 0.5 MG, QD
     Route: 048
     Dates: start: 20150513

REACTIONS (6)
  - Muscular weakness [Unknown]
  - Cervical myelopathy [Unknown]
  - Abasia [Recovering/Resolving]
  - Blood pressure increased [Unknown]
  - Nerve root compression [Unknown]
  - Gait disturbance [Unknown]
